FAERS Safety Report 9592921 (Version 1)
Quarter: 2013Q4

REPORT INFORMATION
  Report Type: Spontaneous
  Country: DE (occurrence: None)
  Receive Date: 20131002
  Receipt Date: 20131002
  Transmission Date: 20140711
  Serious: Yes (Other)
  Sender: FDA-Public Use
  Company Number: 1309-1212

PATIENT
  Age: 77 Year
  Sex: Female

DRUGS (1)
  1. EYLEA [Suspect]
     Indication: AGE-RELATED MACULAR DEGENERATION
     Dosage: INTRAOCULAR.
     Dates: start: 20121217

REACTIONS (2)
  - Vision blurred [None]
  - Blindness transient [None]
